FAERS Safety Report 8336306-3 (Version None)
Quarter: 2012Q2

REPORT INFORMATION
  Report Type: 
  Country: None (occurrence: None)
  Receive Date: 20120501
  Receipt Date: 20120420
  Transmission Date: 20120825
  Serious: Yes (Hospitalization)
  Sender: FDA-Public Use
  Company Number: TCI2012A02116

PATIENT
  Age: 70 Year
  Sex: Male

DRUGS (1)
  1. ACTOS [Suspect]
     Indication: DIABETES MELLITUS
     Dosage: 15 MG (15 MG,1 D) PER ORAL
     Route: 048
     Dates: start: 20090507, end: 20110411

REACTIONS (4)
  - DYSPNOEA [None]
  - COUGH [None]
  - CARDIAC FAILURE [None]
  - ATRIAL FLUTTER [None]
